FAERS Safety Report 21780705 (Version 1)
Quarter: 2022Q4

REPORT INFORMATION
  Report Type: Report from Study
  Country: CL (occurrence: CL)
  Receive Date: 20221227
  Receipt Date: 20221227
  Transmission Date: 20230112
  Serious: Yes (Other)
  Sender: FDA-Public Use
  Company Number: CL-ABBVIE-4200337

PATIENT
  Sex: Male

DRUGS (2)
  1. SKYRIZI [Suspect]
     Active Substance: RISANKIZUMAB-RZAA
     Indication: Psoriasis
     Dosage: FIRST ADMIN DATE 23 AUG 2022, LAST ADMIN DATE 2022
     Route: 058
  2. LEXA [Concomitant]
     Indication: Product used for unknown indication

REACTIONS (7)
  - Spinal disorder [Recovering/Resolving]
  - Spondylitis [Unknown]
  - Spinal pain [Unknown]
  - Spinal osteoarthritis [Unknown]
  - Procedural pain [Unknown]
  - Nerve compression [Unknown]
  - Scoliosis [Unknown]

NARRATIVE: CASE EVENT DATE: 20220101
